FAERS Safety Report 8106218-9 (Version None)
Quarter: 2012Q1

REPORT INFORMATION
  Report Type: 
  Country: None (occurrence: None)
  Receive Date: 20120202
  Receipt Date: 20120127
  Transmission Date: 20120608
  Serious: Yes (Disabling, Other)
  Sender: FDA-Public Use
  Company Number: US-TEVA-319935USA

PATIENT
  Sex: Female

DRUGS (3)
  1. PROPOXYPHENE NAPSYLATE W/ ACETAMINOPHEN [Suspect]
     Indication: PAIN
  2. PROPACET 100 [Suspect]
     Indication: PAIN
  3. PROPOXYPHENE HCL [Suspect]
     Indication: PAIN

REACTIONS (5)
  - HYPOTENSION [None]
  - ARRHYTHMIA [None]
  - CARDIOVASCULAR DISORDER [None]
  - MYOCARDIAL INFARCTION [None]
  - CARDIAC FAILURE [None]
